FAERS Safety Report 9870073 (Version 1)
Quarter: 2014Q1

REPORT INFORMATION
  Report Type: Spontaneous
  Country: US (occurrence: US)
  Receive Date: 20140205
  Receipt Date: 20140205
  Transmission Date: 20141002
  Serious: No
  Sender: FDA-Public Use
  Company Number: US-GLAXOSMITHKLINE-A1051054A

PATIENT
  Age: 31 Year
  Sex: Male

DRUGS (2)
  1. VALTREX [Suspect]
     Indication: GENITAL HERPES
     Dosage: 1000MG AS REQUIRED
     Route: 048
     Dates: start: 1995
  2. NO CONCURRENT MEDICATION [Concomitant]

REACTIONS (1)
  - Blood urine present [Not Recovered/Not Resolved]
